FAERS Safety Report 5969013-2 (Version None)
Quarter: 2008Q4

REPORT INFORMATION
  Report Type: 
  Country: None (occurrence: None)
  Receive Date: 20081126
  Receipt Date: 20081119
  Transmission Date: 20090506
  Serious: Yes (Hospitalization, Other)
  Sender: FDA-Public Use
  Company Number: US-ABBOTT-08P-163-0488846-00

PATIENT
  Sex: Male
  Weight: 72.6 kg

DRUGS (19)
  1. VICODIN [Suspect]
     Indication: PAIN
     Dosage: 10-500 MG, FOUR TIMES PER DAY
  2. VICODIN [Suspect]
  3. GABAPENTIN [Suspect]
     Indication: BACK PAIN
     Dates: start: 20000101, end: 20030501
  4. GABAPENTIN [Suspect]
     Dates: start: 20040401, end: 20040401
  5. GABAPENTIN [Suspect]
     Dates: end: 20040511
  6. PARECOXIB SODIUM [Suspect]
     Indication: ILL-DEFINED DISORDER
     Dates: start: 20040501, end: 20040501
  7. ROFECOXIB [Suspect]
     Indication: ILL-DEFINED DISORDER
     Dates: start: 20000101, end: 20040501
  8. FENTANYL [Suspect]
     Indication: ILL-DEFINED DISORDER
     Route: 062
     Dates: start: 20020101, end: 20040501
  9. OPIOIDS [Suspect]
     Indication: ILL-DEFINED DISORDER
  10. TIZANIDINE HCL [Concomitant]
     Indication: DRUG USE FOR UNKNOWN INDICATION
     Dates: start: 20000101
  11. DOCUSATE SODIUM [Concomitant]
     Indication: DRUG USE FOR UNKNOWN INDICATION
     Dates: start: 20000101
  12. AMITRIPTYLINE HCL [Concomitant]
     Indication: DRUG USE FOR UNKNOWN INDICATION
     Dates: start: 20000101
  13. BUPROPION HCL [Concomitant]
     Indication: DRUG USE FOR UNKNOWN INDICATION
     Dates: start: 20000101
  14. ESOMEPRAZOLE MAGNESIUM [Concomitant]
     Indication: DRUG USE FOR UNKNOWN INDICATION
     Dates: start: 20000101
  15. ALLEGRA D 24 HOUR [Concomitant]
     Indication: DRUG USE FOR UNKNOWN INDICATION
     Dates: start: 20000101
  16. TUSSEX COUGH [Concomitant]
     Indication: DRUG USE FOR UNKNOWN INDICATION
     Dates: start: 20000101
  17. GUAIFENESIN [Concomitant]
     Indication: DRUG USE FOR UNKNOWN INDICATION
     Dates: start: 20000101
  18. PHENYLEPHRINE [Concomitant]
     Indication: DRUG USE FOR UNKNOWN INDICATION
     Dates: start: 20000101
  19. SILDENAFIL CITRATE [Concomitant]
     Indication: DRUG USE FOR UNKNOWN INDICATION
     Dates: start: 20000101

REACTIONS (25)
  - ABNORMAL BEHAVIOUR [None]
  - ADVERSE REACTION [None]
  - ALCOHOL POISONING [None]
  - CONFUSIONAL STATE [None]
  - CONVULSION [None]
  - DEPRESSED LEVEL OF CONSCIOUSNESS [None]
  - DYSARTHRIA [None]
  - DYSPHASIA [None]
  - DYSSTASIA [None]
  - HEADACHE [None]
  - HIATUS HERNIA [None]
  - INSOMNIA [None]
  - LOSS OF CONSCIOUSNESS [None]
  - MENTAL STATUS CHANGES [None]
  - MIOSIS [None]
  - OVERDOSE [None]
  - PAIN [None]
  - POISONING [None]
  - RESTLESSNESS [None]
  - ROAD TRAFFIC ACCIDENT [None]
  - SOMNOLENCE [None]
  - SPEECH DISORDER [None]
  - SPINAL OSTEOARTHRITIS [None]
  - UNEVALUABLE EVENT [None]
  - VISUAL IMPAIRMENT [None]
